FAERS Safety Report 15197339 (Version 2)
Quarter: 2018Q3

REPORT INFORMATION
  Report Type: Spontaneous
  Country: SE (occurrence: SE)
  Receive Date: 20180725
  Receipt Date: 20180803
  Transmission Date: 20181010
  Serious: Yes (Life-Threatening, Hospitalization)
  Sender: FDA-Public Use
  Company Number: PHHY2018SE052714

PATIENT
  Age: 55 Year
  Sex: Female

DRUGS (4)
  1. AMLODIPINE [Suspect]
     Active Substance: AMLODIPINE BESYLATE
     Indication: SUICIDE ATTEMPT
     Dosage: INGESTED LARGE AMOUNTS
     Route: 048
  2. ATENOLOL. [Suspect]
     Active Substance: ATENOLOL
     Indication: SUICIDE ATTEMPT
     Dosage: INGESTED LARGE AMOUNTS
     Route: 048
  3. PARACETAMOL [Suspect]
     Active Substance: ACETAMINOPHEN
     Indication: SUICIDE ATTEMPT
     Dosage: INGESTED LARGE AMOUNTS
     Route: 048
  4. VENLAFAXINE [Suspect]
     Active Substance: VENLAFAXINE HYDROCHLORIDE
     Indication: SUICIDE ATTEMPT
     Dosage: INGESTED LARGE AMOUNTS
     Route: 048

REACTIONS (9)
  - Hypokinesia [Recovered/Resolved]
  - Blood pressure decreased [Recovering/Resolving]
  - Suicide attempt [Recovered/Resolved]
  - Ejection fraction decreased [Recovered/Resolved]
  - Shock [Recovering/Resolving]
  - Heart rate decreased [Recovering/Resolving]
  - Toxicity to various agents [Recovered/Resolved]
  - Blood lactic acid increased [Unknown]
  - Loss of consciousness [Unknown]
